FAERS Safety Report 13229422 (Version 1)
Quarter: 2017Q1

REPORT INFORMATION
  Report Type: Spontaneous
  Country: US (occurrence: US)
  Receive Date: 20170213
  Receipt Date: 20170213
  Transmission Date: 20170428
  Serious: Yes (Life-Threatening, Hospitalization)
  Sender: FDA-Public Use
  Company Number: None

PATIENT
  Age: 75 Year
  Sex: Male
  Weight: 98.1 kg

DRUGS (11)
  1. COREG [Concomitant]
     Active Substance: CARVEDILOL
  2. PACEMAKER [Concomitant]
  3. ALLOPURINOL. [Concomitant]
     Active Substance: ALLOPURINOL
  4. BUMETANIDE. [Concomitant]
     Active Substance: BUMETANIDE
  5. ELIQUIS [Suspect]
     Active Substance: APIXABAN
     Indication: CARDIAC FAILURE CONGESTIVE
     Dosage: ?          QUANTITY:1 TABLET(S);?
     Route: 048
     Dates: start: 20161223, end: 20161228
  6. PLAQUENIL [Concomitant]
     Active Substance: HYDROXYCHLOROQUINE SULFATE
  7. RANITIDINE. [Concomitant]
     Active Substance: RANITIDINE
  8. IRON SULFATE [Concomitant]
     Active Substance: FERROUS SULFATE ANHYDROUS
  9. LORATADINE. [Concomitant]
     Active Substance: LORATADINE
  10. WARFARIN [Concomitant]
     Active Substance: WARFARIN
  11. ALBUTEROL. [Concomitant]
     Active Substance: ALBUTEROL

REACTIONS (6)
  - Peripheral swelling [None]
  - Insomnia [None]
  - Dysphagia [None]
  - Dyspnoea [None]
  - Weight increased [None]
  - Pain in extremity [None]

NARRATIVE: CASE EVENT DATE: 20161223
